FAERS Safety Report 21238549 (Version 1)
Quarter: 2022Q3

REPORT INFORMATION
  Report Type: Spontaneous
  Country: US (occurrence: US)
  Receive Date: 20220822
  Receipt Date: 20220822
  Transmission Date: 20221026
  Serious: No
  Sender: FDA-Public Use
  Company Number: US-TORRENT-00011969

PATIENT
  Age: 69 Year
  Sex: Male

DRUGS (4)
  1. LOSARTAN [Suspect]
     Active Substance: LOSARTAN
     Indication: Product used for unknown indication
     Dosage: UNKNOWN
     Route: 065
  2. ORGOVYX [Suspect]
     Active Substance: RELUGOLIX
     Indication: Prostate cancer
     Dosage: 120 MG, ONCE DAILY
     Route: 048
     Dates: start: 20210502
  3. XTANDI [Suspect]
     Active Substance: ENZALUTAMIDE
     Indication: Product used for unknown indication
     Dosage: UNKNOWN
     Route: 065
  4. ENZALUTAMIDE [Suspect]
     Active Substance: ENZALUTAMIDE
     Indication: Prostate cancer
     Dosage: 160 MG, ONCE DAILY
     Route: 048
     Dates: start: 20210506

REACTIONS (2)
  - Blood pressure decreased [Unknown]
  - Product dose omission issue [Unknown]
